FAERS Safety Report 7460288-X (Version None)
Quarter: 2011Q2

REPORT INFORMATION
  Report Type: 
  Country: None (occurrence: None)
  Receive Date: 20110505
  Receipt Date: 20110502
  Transmission Date: 20111010
  Serious: Yes (Other)
  Sender: FDA-Public Use
  Company Number: US-RB-024809-11

PATIENT
  Age: 23 Year
  Sex: Female

DRUGS (1)
  1. MUCINEX DM [Suspect]
     Dosage: PATIENT TOOK 1 TABLET EVERY 12 HOURS ON 01-MAY-2011 AND ONE MORE TABLET ON 02-MAY-2011
     Route: 048

REACTIONS (4)
  - CHEST PAIN [None]
  - CARDIAC DISORDER [None]
  - EPISTAXIS [None]
  - VOMITING [None]
